FAERS Safety Report 12706371 (Version 1)
Quarter: 2016Q3

REPORT INFORMATION
  Report Type: Spontaneous
  Country: GB (occurrence: GB)
  Receive Date: 20160901
  Receipt Date: 20160901
  Transmission Date: 20161109
  Serious: Yes (Other)
  Sender: FDA-Public Use
  Company Number: GB-BAYER-2016-169985

PATIENT
  Age: 17 Year
  Sex: Female

DRUGS (2)
  1. LEVETIRACETAM. [Concomitant]
     Active Substance: LEVETIRACETAM
     Dosage: 500 MG, BID
  2. LORATADINE. [Suspect]
     Active Substance: LORATADINE
     Indication: DERMATITIS ALLERGIC
     Dosage: 10 MG, QD
     Route: 048
     Dates: start: 20160816, end: 20160819

REACTIONS (1)
  - Epilepsy [Recovered/Resolved]

NARRATIVE: CASE EVENT DATE: 20160819
